FAERS Safety Report 4708166-0 (Version None)
Quarter: 2005Q2

REPORT INFORMATION
  Report Type: 
  Country: None (occurrence: None)
  Receive Date: 20050629
  Receipt Date: 20050512
  Transmission Date: 20051028
  Serious: No
  Sender: FDA-Public Use
  Company Number: 05P-163-0300325-00

PATIENT
  Age: 52 Year
  Sex: Female
  Weight: 83.9154 kg

DRUGS (5)
  1. HUMIRA [Suspect]
     Indication: RHEUMATOID ARTHRITIS
     Dosage: 40 MG, 1 IN 10 D, SUBCUTANEOUS
     Route: 058
     Dates: start: 20030801
  2. ESOMEPRAZOLE [Concomitant]
  3. MULTI-VITAMINS [Concomitant]
  4. CYANOCOBALAMIN [Concomitant]
  5. PYRIDOXINE HYDROCHLORIDE [Concomitant]

REACTIONS (5)
  - INJECTION SITE ERYTHEMA [None]
  - INJECTION SITE PRURITUS [None]
  - INJECTION SITE SWELLING [None]
  - RASH PRURITIC [None]
  - RASH SCALY [None]
